FAERS Safety Report 5162143-7 (Version None)
Quarter: 2006Q4

REPORT INFORMATION
  Report Type: 
  Country: None (occurrence: None)
  Receive Date: 20061120
  Receipt Date: 20061109
  Transmission Date: 20070319
  Serious: Yes (Hospitalization, Other)
  Sender: FDA-Public Use
  Company Number: FRWYE234328JUL03

PATIENT
  Age: 49 Year
  Sex: Male

DRUGS (6)
  1. NEORAL [Suspect]
     Indication: PROPHYLAXIS AGAINST TRANSPLANT REJECTION
     Dosage: 325 MG 1X PER 1 DAY ORAL
     Route: 048
     Dates: start: 20030508
  2. CELLCEPT [Concomitant]
  3. PREDNISONE [Concomitant]
  4. BACTRIM DS [Concomitant]
  5. TARKA [Concomitant]
  6. OMEPRAZOLE [Concomitant]

REACTIONS (2)
  - RENAL LYMPHOCELE [None]
  - URETERIC STENOSIS [None]
